FAERS Safety Report 8572027-X (Version None)
Quarter: 2012Q2

REPORT INFORMATION
  Report Type: 
  Country: None (occurrence: None)
  Receive Date: 20120423
  Receipt Date: 20101026
  Transmission Date: 20120825
  Serious: Yes (Other)
  Sender: FDA-Public Use
  Company Number: PHHY2010US56414

PATIENT
  Age: 74 Year
  Sex: Male

DRUGS (1)
  1. EXJADE [Suspect]
     Dosage: 1500 MG, DAILY, ORAL
     Route: 048
     Dates: start: 20100701, end: 20100809

REACTIONS (7)
  - NAUSEA [None]
  - RASH PRURITIC [None]
  - VOMITING [None]
  - RASH MACULO-PAPULAR [None]
  - BLOOD CREATININE INCREASED [None]
  - MALAISE [None]
  - BLOOD CREATINE ABNORMAL [None]
